FAERS Safety Report 25662095 (Version 1)
Quarter: 2025Q3

REPORT INFORMATION
  Report Type: Spontaneous
  Country: JP (occurrence: JP)
  Receive Date: 20250810
  Receipt Date: 20250810
  Transmission Date: 20251021
  Serious: Yes (Hospitalization)
  Sender: MERCK SHARP & DOHME LLC
  Company Number: JP-009507513-2316231

PATIENT
  Sex: Male

DRUGS (5)
  1. BELSOMRA [Suspect]
     Active Substance: SUVOREXANT
     Route: 048
  2. EURODIN [Concomitant]
     Route: 065
  3. CERCINE [Concomitant]
     Active Substance: DIAZEPAM
     Route: 065
  4. DIAZEPAM [Concomitant]
     Active Substance: DIAZEPAM
     Route: 065
  5. BROTIZOLAM [Concomitant]
     Active Substance: BROTIZOLAM
     Route: 065

REACTIONS (4)
  - Middle insomnia [Not Recovered/Not Resolved]
  - Initial insomnia [Unknown]
  - Product prescribing issue [Unknown]
  - Incorrect dose administered [Unknown]
